FAERS Safety Report 5685024-9 (Version None)
Quarter: 2008Q1

REPORT INFORMATION
  Report Type: 
  Country: None (occurrence: None)
  Receive Date: 20080328
  Receipt Date: 19980501
  Transmission Date: 20080703
  Serious: Yes (Death, Hospitalization, Other)
  Sender: FDA-Public Use
  Company Number: US-ROCHE-90021

PATIENT
  Age: 72 Year
  Sex: Female

DRUGS (1)
  1. TICLID [Suspect]
     Indication: CEREBROVASCULAR ACCIDENT PROPHYLAXIS
     Route: 048
     Dates: start: 19970922, end: 19971023

REACTIONS (7)
  - ABDOMINAL PAIN [None]
  - CAROTID ARTERY OCCLUSION [None]
  - DEATH [None]
  - JAUNDICE [None]
  - LIVER FUNCTION TEST ABNORMAL [None]
  - NAUSEA [None]
  - VOMITING [None]
